FAERS Safety Report 10055568 (Version 2)
Quarter: 2014Q2

REPORT INFORMATION
  Report Type: Spontaneous
  Country: DE (occurrence: DE)
  Receive Date: 20140403
  Receipt Date: 20140403
  Transmission Date: 20141212
  Serious: Yes (Hospitalization)
  Sender: FDA-Public Use
  Company Number: DE-DRREDDYS-GER/GER/14/0038782

PATIENT
  Age: 59 Year
  Sex: Male
  Weight: 92 kg

DRUGS (2)
  1. SERTRALIN [Suspect]
     Indication: DEPRESSION
     Route: 048
     Dates: start: 20140228, end: 20140301
  2. SERTRALIN [Suspect]
     Route: 048
     Dates: start: 20140302, end: 20140306

REACTIONS (3)
  - Asthenia [Recovered/Resolved]
  - Vomiting [Recovered/Resolved]
  - Decreased appetite [Recovered/Resolved]
